FAERS Safety Report 14518011 (Version 1)
Quarter: 2018Q1

REPORT INFORMATION
  Report Type: Spontaneous
  Country: US (occurrence: US)
  Receive Date: 20180212
  Receipt Date: 20180212
  Transmission Date: 20180509
  Serious: No
  Sender: FDA-Public Use
  Company Number: US-ASTRAZENECA-2018SE17001

PATIENT
  Age: 83 Year
  Sex: Female
  Weight: 68.4 kg

DRUGS (1)
  1. NEXIUM 24HR [Suspect]
     Active Substance: ESOMEPRAZOLE MAGNESIUM
     Route: 048
     Dates: start: 2018

REACTIONS (5)
  - Condition aggravated [Not Recovered/Not Resolved]
  - Chest pain [Not Recovered/Not Resolved]
  - Inappropriate schedule of drug administration [Unknown]
  - Weight increased [Unknown]
  - Influenza [Recovering/Resolving]

NARRATIVE: CASE EVENT DATE: 2018
